FAERS Safety Report 5635718-6 (Version None)
Quarter: 2008Q1

REPORT INFORMATION
  Report Type: 
  Country: None (occurrence: None)
  Receive Date: 20080220
  Receipt Date: 20080212
  Transmission Date: 20080703
  Serious: Yes (Other)
  Sender: FDA-Public Use
  Company Number: JPI-P-003006

PATIENT
  Age: 79 Year
  Sex: Female

DRUGS (9)
  1. LUVOX [Suspect]
     Indication: DEPRESSION
     Dosage: ORAL
     Route: 048
  2. QUETIAPINE FUMARATE [Suspect]
     Indication: DRUG USE FOR UNKNOWN INDICATION
     Dosage: ORAL
     Route: 048
  3. METHYLDOPA [Concomitant]
  4. PRAMIPEXOLE HYDROCHLORIDE HYDRATE (PRAMIPEXOLE DIHYDROCHLORIDE) [Concomitant]
  5. ENALAPRIL MALEATE [Concomitant]
  6. FUROSEMIDE [Concomitant]
  7. METILDIGOXIN (METILDIGOXIN) [Concomitant]
  8. ACETYLSALICYLIC ACID SRT [Concomitant]
  9. WARFARIN POTASSIUM (WARFARIN POTASSIUM) [Concomitant]

REACTIONS (1)
  - DEMENTIA [None]
